FAERS Safety Report 17337945 (Version 3)
Quarter: 2020Q3

REPORT INFORMATION
  Report Type: Spontaneous
  Country: US (occurrence: US)
  Receive Date: 20200129
  Receipt Date: 20200821
  Transmission Date: 20201102
  Serious: No
  Sender: FDA-Public Use
  Company Number: US-BEH-2020112007

PATIENT
  Sex: Female

DRUGS (3)
  1. CYMBALTA [Concomitant]
     Active Substance: DULOXETINE HYDROCHLORIDE
  2. VYVANSE [Concomitant]
     Active Substance: LISDEXAMFETAMINE DIMESYLATE
     Dosage: 40 MILLIGRAM
  3. HIZENTRA [Suspect]
     Active Substance: HUMAN IMMUNOGLOBULIN G
     Indication: HUMORAL IMMUNE DEFECT
     Dosage: 10 GRAM
     Route: 058
     Dates: start: 201710

REACTIONS (9)
  - Injection site mass [Recovered/Resolved]
  - Gastroenteritis [Recovered/Resolved]
  - Infusion site bruising [Recovered/Resolved]
  - Paranasal sinus hypersecretion [Recovered/Resolved]
  - Administration site bruise [Recovered/Resolved]
  - Administration site rash [Recovered/Resolved]
  - Tenderness [Recovered/Resolved]
  - Fatigue [Recovered/Resolved]
  - Cough [Recovered/Resolved]
